FAERS Safety Report 9953887 (Version 1)
Quarter: 2014Q1

REPORT INFORMATION
  Report Type: Spontaneous
  Country: US (occurrence: US)
  Receive Date: 20140304
  Receipt Date: 20140304
  Transmission Date: 20141002
  Serious: No
  Sender: FDA-Public Use
  Company Number: US-PFIZER INC-2014061174

PATIENT
  Age: 40 Year
  Sex: Male
  Weight: 58.96 kg

DRUGS (2)
  1. ADVIL [Suspect]
     Indication: PAIN
     Dosage: UP TO 6 TABLETS, AS NEEDED
     Dates: start: 201402
  2. TYLENOL [Concomitant]
     Indication: PAIN
     Dosage: 1000 MG (2 TABLETS OF 500 MG), UNK

REACTIONS (2)
  - Oropharyngeal pain [Recovering/Resolving]
  - Foreign body [Unknown]
